FAERS Safety Report 6748487-3 (Version None)
Quarter: 2010Q2

REPORT INFORMATION
  Report Type: 
  Country: None (occurrence: None)
  Receive Date: 20100527
  Receipt Date: 20100527
  Transmission Date: 20101027
  Serious: Yes (Hospitalization)
  Sender: FDA-Public Use
  Company Number: None

PATIENT
  Sex: Female
  Weight: 24.9 kg

DRUGS (1)
  1. DOXORUBICIN HCL [Suspect]
     Dosage: 67.5 MG

REACTIONS (2)
  - CARDIAC FAILURE CONGESTIVE [None]
  - DEVICE CONNECTION ISSUE [None]
